FAERS Safety Report 6887762-9 (Version None)
Quarter: 2010Q3

REPORT INFORMATION
  Report Type: 
  Country: None (occurrence: None)
  Receive Date: 20100730
  Receipt Date: 20100723
  Transmission Date: 20110219
  Serious: Yes (Hospitalization)
  Sender: FDA-Public Use
  Company Number: FR-ROCHE-717366

PATIENT
  Sex: Female
  Weight: 64 kg

DRUGS (3)
  1. MYCOPHENOLATE MOFETIL [Suspect]
     Route: 048
     Dates: start: 20100701
  2. SOLUPRED [Suspect]
     Route: 048
     Dates: start: 20100701
  3. CERTICAN [Suspect]
     Route: 048
     Dates: start: 20100706

REACTIONS (2)
  - BLOOD CREATININE INCREASED [None]
  - TRANSPLANT REJECTION [None]
